FAERS Safety Report 8458645-8 (Version None)
Quarter: 2012Q2

REPORT INFORMATION
  Report Type: 
  Country: None (occurrence: None)
  Receive Date: 20120622
  Receipt Date: 20120618
  Transmission Date: 20120825
  Serious: Yes (Other)
  Sender: FDA-Public Use
  Company Number: US-PFIZER INC-2012146748

PATIENT
  Sex: Female
  Weight: 72.562 kg

DRUGS (2)
  1. TOVIAZ [Suspect]
     Indication: HYPERTONIC BLADDER
     Dosage: 4 MG, 1X/DAY
     Route: 048
     Dates: start: 20111101
  2. METFORMIN [Concomitant]
     Indication: DIABETES MELLITUS
     Dosage: 400 MG, 1X/DAY

REACTIONS (4)
  - VISION BLURRED [None]
  - VISUAL IMPAIRMENT [None]
  - OCULAR NEOPLASM [None]
  - PHOTOPHOBIA [None]
